FAERS Safety Report 8778269 (Version 1)
Quarter: 2012Q4

REPORT INFORMATION
  Report Type: 
  Country: US (occurrence: US)
  Receive Date: 20120912
  Receipt Date: 20120912
  Transmission Date: 20130627
  Serious: No
  Sender: FDA-Public Use
  Company Number: US-ASTRAZENECA-2012SE60050

PATIENT
  Age: 62 Year
  Sex: Male

DRUGS (7)
  1. SYMBICORT PMDI [Suspect]
     Dosage: 160/4.5 MCG, TWO PUFFS, TWO TIMES A DAY FOR 90 DAYS
     Route: 055
     Dates: start: 20120815
  2. LISINOPRIL HYDROCHLOROTHIAZIDE [Suspect]
     Dosage: 20-25 MG TABLET, ONE TABLET, DAILY FOR 30 DAYS
     Route: 048
     Dates: start: 20120606
  3. PROAIR HFA [Concomitant]
     Route: 055
     Dates: start: 20120726
  4. SPIRIVA HANDIHALER [Concomitant]
     Dosage: 1DF, DAILY FOR 90 DAYS
     Route: 055
     Dates: start: 20120726
  5. NAPROXEN [Concomitant]
     Route: 048
  6. ASPIRIN [Concomitant]
     Dosage: 81 MG TABLET, DAILY, FOR 90 DAYS
     Route: 048
     Dates: start: 20120606
  7. VIAGRA [Concomitant]
     Route: 048
     Dates: start: 20120712

REACTIONS (7)
  - Chronic obstructive pulmonary disease [Unknown]
  - Dyspnoea exertional [Unknown]
  - Essential hypertension [Unknown]
  - Seasonal allergy [Unknown]
  - Chest pain [Unknown]
  - Rhinitis allergic [Unknown]
  - Headache [Unknown]
